FAERS Safety Report 7372655-3 (Version None)
Quarter: 2011Q1

REPORT INFORMATION
  Report Type: 
  Country: None (occurrence: None)
  Receive Date: 20110324
  Receipt Date: 20110314
  Transmission Date: 20110831
  Serious: Yes (Hospitalization, Other)
  Sender: FDA-Public Use
  Company Number: US-BAYER-2011-025660

PATIENT
  Sex: Female
  Weight: 77.098 kg

DRUGS (4)
  1. LEVAQUIN [Concomitant]
     Dosage: UNK
     Dates: start: 20070604
  2. HYDROCHLOROTHIAZIDE [Concomitant]
  3. NSAID'S [Concomitant]
     Dosage: UNK
     Dates: start: 20000101
  4. YASMIN [Suspect]
     Dosage: UNK
     Dates: start: 20061117, end: 20070603

REACTIONS (2)
  - THROMBOPHLEBITIS SUPERFICIAL [None]
  - DEEP VEIN THROMBOSIS [None]
